FAERS Safety Report 24241387 (Version 3)
Quarter: 2024Q3

REPORT INFORMATION
  Report Type: Spontaneous
  Country: BR (occurrence: BR)
  Receive Date: 20240823
  Receipt Date: 20240907
  Transmission Date: 20241016
  Serious: Yes (Hospitalization, Other)
  Sender: CELLTRION
  Company Number: BR-CELLTRION INC.-2024BR019992

PATIENT

DRUGS (6)
  1. INFLIXIMAB [Suspect]
     Active Substance: INFLIXIMAB
     Indication: Ankylosing spondylitis
     Dosage: 315 MG EVERY 8 WEEKS
     Route: 042
     Dates: start: 20221213, end: 20240719
  2. INFLIXIMAB [Suspect]
     Active Substance: INFLIXIMAB
     Dosage: 315 MG EVERY 8 WEEKS
     Route: 042
     Dates: start: 20240819
  3. METHOTREXATE [Concomitant]
     Active Substance: METHOTREXATE
     Indication: Spondylitis
     Dosage: 6 PILLS A WEEK (START DATE: 3 YEARS AGO)
     Route: 048
  4. FOLATE SODIUM [Concomitant]
     Active Substance: FOLATE SODIUM
     Indication: Spondylitis
     Dosage: 1 PILL A WEEK (START DATE: 3 YEARS AGO)
     Route: 048
  5. RISEDRONATE SODIUM [Concomitant]
     Active Substance: RISEDRONATE SODIUM
     Indication: Osteoporosis
     Dosage: 1 PILL A WEEK (START DATE: 3 YEARS AGO)
     Route: 048
  6. PREDNISONE ACETATE [Concomitant]
     Active Substance: PREDNISONE ACETATE
     Indication: Spondylitis
     Dosage: 1 PILL A DAY (START DATE: 2 MONTHS AGO)
     Route: 048

REACTIONS (4)
  - Post procedural inflammation [Recovering/Resolving]
  - Intentional dose omission [Unknown]
  - Underdose [Unknown]
  - Therapeutic product effect decreased [Unknown]

NARRATIVE: CASE EVENT DATE: 20240709
